FAERS Safety Report 5257365-0 (Version None)
Quarter: 2007Q1

REPORT INFORMATION
  Report Type: 
  Country: None (occurrence: None)
  Receive Date: 20061207
  Receipt Date: 20040820
  Transmission Date: 20070707
  Serious: Yes (Hospitalization)
  Sender: FDA-Public Use
  Company Number: 2004UW11240

PATIENT
  Age: 51 Year
  Sex: Male
  Weight: 66.6788 kg

DRUGS (6)
  1. ACCOLATE [Suspect]
     Indication: MASTOCYTOSIS
     Dosage: 20 MG BID PO
     Route: 048
     Dates: start: 20040316, end: 20040508
  2. ZYRTEC [Concomitant]
  3. NORVASC [Concomitant]
  4. FOSAMAX [Concomitant]
  5. MULTI-VITAMIN [Concomitant]
  6. ASPIRIN [Concomitant]

REACTIONS (1)
  - HEPATITIS [None]
